FAERS Safety Report 9788886 (Version 1)
Quarter: 2013Q4

REPORT INFORMATION
  Report Type: Spontaneous
  Country: US (occurrence: US)
  Receive Date: 20131230
  Receipt Date: 20131230
  Transmission Date: 20140711
  Serious: Yes (Disabling)
  Sender: FDA-Public Use
  Company Number: US-GE HEALTHCARE MEDICAL DIAGNOSTICS-OSCN-PR-1312S-0153

PATIENT
  Age: 50 Year
  Sex: Female

DRUGS (3)
  1. OMNISCAN [Suspect]
     Indication: SYNCOPE
     Route: 042
     Dates: start: 20040517, end: 20040517
  2. OMNISCAN [Suspect]
     Indication: CONVULSION
     Route: 042
     Dates: start: 20040519, end: 20040519
  3. OMNISCAN [Suspect]
     Indication: DIZZINESS

REACTIONS (1)
  - Nephrogenic systemic fibrosis [Not Recovered/Not Resolved]
